FAERS Safety Report 5732521-3 (Version None)
Quarter: 2008Q2

REPORT INFORMATION
  Report Type: 
  Country: None (occurrence: None)
  Receive Date: 20080508
  Receipt Date: 20080505
  Transmission Date: 20081010
  Serious: Yes (Hospitalization)
  Sender: FDA-Public Use
  Company Number: US-MERCK-0805USA00823

PATIENT
  Age: 11 Year
  Sex: Female

DRUGS (1)
  1. SINGULAIR [Suspect]
     Indication: HYPERSENSITIVITY
     Route: 048
     Dates: start: 20070801, end: 20080318

REACTIONS (3)
  - ABDOMINAL PAIN [None]
  - HELICOBACTER INFECTION [None]
  - OVERDOSE [None]
